FAERS Safety Report 16530133 (Version 2)
Quarter: 2019Q3

REPORT INFORMATION
  Report Type: Spontaneous
  Country: US (occurrence: US)
  Receive Date: 20190704
  Receipt Date: 20190731
  Transmission Date: 20191004
  Serious: Yes (Hospitalization)
  Sender: FDA-Public Use
  Company Number: US-TEVA-2019-US-1070456

PATIENT
  Age: 30 Year
  Sex: Male

DRUGS (5)
  1. PEMBROLIZUMAB. [Suspect]
     Active Substance: PEMBROLIZUMAB
     Indication: SQUAMOUS CELL CARCINOMA
     Route: 065
  2. ELVITEGRAVIR-COBICISTAT-EMTRICITABINE-TENOFOVIR-ALAFENAMIDE [Concomitant]
     Indication: HIV INFECTION
     Dosage: SINGLE PILL COMBINATION THERAPY EVERY DAY
     Route: 065
  3. CARBOPLATIN. [Suspect]
     Active Substance: CARBOPLATIN
     Indication: SQUAMOUS CELL CARCINOMA
     Route: 065
  4. FLUOROURACIL. [Suspect]
     Active Substance: FLUOROURACIL
     Indication: SQUAMOUS CELL CARCINOMA
     Route: 065
  5. CISPLATIN. [Suspect]
     Active Substance: CISPLATIN
     Indication: SQUAMOUS CELL CARCINOMA
     Route: 065

REACTIONS (10)
  - Bacterial infection [Unknown]
  - Pelvic abscess [Unknown]
  - Groin abscess [Unknown]
  - Urinary tract infection [Recovering/Resolving]
  - Limb injury [Unknown]
  - Pseudomonas infection [Recovered/Resolved]
  - Oedema peripheral [Unknown]
  - Joint range of motion decreased [Unknown]
  - Hydronephrosis [Recovering/Resolving]
  - Lymphadenopathy [Unknown]
